FAERS Safety Report 8335687-4 (Version None)
Quarter: 2012Q2

REPORT INFORMATION
  Report Type: 
  Country: None (occurrence: None)
  Receive Date: 20120504
  Receipt Date: 20120425
  Transmission Date: 20120825
  Serious: No
  Sender: FDA-Public Use
  Company Number: US-BIOGENIDEC-2012BI014484

PATIENT
  Age: 44 Year
  Sex: Female

DRUGS (1)
  1. TYSABRI [Suspect]
     Indication: MULTIPLE SCLEROSIS
     Route: 042
     Dates: start: 20120329

REACTIONS (6)
  - DYSGEUSIA [None]
  - FATIGUE [None]
  - ABDOMINAL DISCOMFORT [None]
  - GENERAL SYMPTOM [None]
  - TONGUE COATED [None]
  - MULTIPLE SCLEROSIS RELAPSE [None]
